FAERS Safety Report 20041913 (Version 1)
Quarter: 2021Q4

REPORT INFORMATION
  Report Type: Spontaneous
  Country: US (occurrence: US)
  Receive Date: 20211108
  Receipt Date: 20211108
  Transmission Date: 20220303
  Serious: No
  Sender: FDA-Public Use
  Company Number: US-STRONGBRIDGE BIOPHARMA-2021-STR-000361

PATIENT
  Sex: Female

DRUGS (1)
  1. KEVEYIS [Suspect]
     Active Substance: DICHLORPHENAMIDE
     Indication: Familial periodic paralysis
     Dosage: 75 MG (50 MG IN THE MORNING AND 25 MG IN THE EVENING), QD
     Route: 048
     Dates: start: 20201014

REACTIONS (2)
  - Asthenia [Unknown]
  - Wrong technique in product usage process [Unknown]
